FAERS Safety Report 25225699 (Version 3)
Quarter: 2025Q3

REPORT INFORMATION
  Report Type: Spontaneous
  Country: US (occurrence: US)
  Receive Date: 20250422
  Receipt Date: 20250722
  Transmission Date: 20251020
  Serious: No
  Sender: SANOFI AVENTIS
  Company Number: US-SA-2025SA110723

PATIENT
  Age: 46 Year
  Sex: Female
  Weight: 87.08 kg

DRUGS (73)
  1. DUPIXENT [Suspect]
     Active Substance: DUPILUMAB
     Indication: Asthma
     Dosage: 300 MG, QOW
     Route: 058
     Dates: start: 201910
  2. DUPIXENT [Suspect]
     Active Substance: DUPILUMAB
     Indication: Immunodeficiency common variable
  3. IRON [Concomitant]
     Active Substance: IRON
  4. PRAVASTATIN SODIUM [Concomitant]
     Active Substance: PRAVASTATIN SODIUM
  5. BLACK COHOSH [Concomitant]
     Active Substance: BLACK COHOSH
  6. ONDANSETRON HYDROCHLORIDE [Concomitant]
     Active Substance: ONDANSETRON HYDROCHLORIDE
  7. LINZESS [Concomitant]
     Active Substance: LINACLOTIDE
  8. ALBUTEROL SULFATE [Concomitant]
     Active Substance: ALBUTEROL SULFATE
  9. AZELASTINE HYDROCHLORIDE\FLUTICASONE PROPIONATE [Concomitant]
     Active Substance: AZELASTINE HYDROCHLORIDE\FLUTICASONE PROPIONATE
  10. PEPCID [Concomitant]
     Active Substance: FAMOTIDINE
  11. PULMICORT FLEXHALER [Concomitant]
     Active Substance: BUDESONIDE
  12. FLONASE ALLERGY RELIEF [Concomitant]
     Active Substance: FLUTICASONE PROPIONATE
  13. KLONOPIN [Concomitant]
     Active Substance: CLONAZEPAM
  14. Tramadol hcl ER [Concomitant]
     Dosage: UNK, QD
  15. XYZAL [Concomitant]
     Active Substance: LEVOCETIRIZINE DIHYDROCHLORIDE
  16. MIRALAX [Concomitant]
     Active Substance: POLYETHYLENE GLYCOL 3350
  17. AMBIEN [Concomitant]
     Active Substance: ZOLPIDEM TARTRATE
  18. ALBUTEROL\IPRATROPIUM [Concomitant]
     Active Substance: ALBUTEROL\IPRATROPIUM
  19. LAMICTAL [Concomitant]
     Active Substance: LAMOTRIGINE
  20. METAXALONE [Concomitant]
     Active Substance: METAXALONE
  21. NEURONTIN [Concomitant]
     Active Substance: GABAPENTIN
  22. BENADRYL [Concomitant]
     Active Substance: DIPHENHYDRAMINE HYDROCHLORIDE
  23. FENOFIBRATE [Concomitant]
     Active Substance: FENOFIBRATE
  24. CLARITHROMYCIN [Concomitant]
     Active Substance: CLARITHROMYCIN
  25. WELLBUTRIN XL [Concomitant]
     Active Substance: BUPROPION HYDROCHLORIDE
     Dosage: UNK, QD
  26. TYLENOL [Concomitant]
     Active Substance: ACETAMINOPHEN
  27. SPIRIVA [Concomitant]
     Active Substance: TIOTROPIUM BROMIDE MONOHYDRATE
  28. POTASSIUM GLUCONATE [Concomitant]
     Active Substance: POTASSIUM GLUCONATE
  29. OMEGA-3 ACIDS [Concomitant]
     Active Substance: OMEGA-3 FATTY ACIDS
  30. LEVOTHYROXINE SODIUM [Concomitant]
     Active Substance: LEVOTHYROXINE SODIUM
  31. IRBESARTAN [Concomitant]
     Active Substance: IRBESARTAN
  32. DEPLIN [Concomitant]
     Active Substance: LEVOMEFOLATE CALCIUM
  33. MINERALS\VITAMINS [Concomitant]
     Active Substance: MINERALS\VITAMINS
  34. Acidophilus/pectin [Concomitant]
  35. LEVALBUTEROL TARTRATE [Concomitant]
     Active Substance: LEVALBUTEROL TARTRATE
  36. NAC [Concomitant]
  37. NAMENDA [Concomitant]
     Active Substance: MEMANTINE HYDROCHLORIDE
  38. CLINDAMYCIN [Concomitant]
     Active Substance: CLINDAMYCIN
  39. METFORMIN HYDROCHLORIDE [Concomitant]
     Active Substance: METFORMIN HYDROCHLORIDE
  40. SYNTHROID [Concomitant]
     Active Substance: LEVOTHYROXINE SODIUM
  41. REMERON [Concomitant]
     Active Substance: MIRTAZAPINE
  42. DOXAZOSIN MESYLATE [Concomitant]
     Active Substance: DOXAZOSIN MESYLATE
  43. VITAMIN D3 [Concomitant]
     Active Substance: CHOLECALCIFEROL
  44. SKELAXIN [Concomitant]
     Active Substance: METAXALONE
  45. XOPENEX [Concomitant]
     Active Substance: LEVALBUTEROL HYDROCHLORIDE
  46. SINGULAIR [Concomitant]
     Active Substance: MONTELUKAST SODIUM
  47. NABUMETONE [Concomitant]
     Active Substance: NABUMETONE
  48. MACROBID [Concomitant]
     Active Substance: NITROFURANTOIN\NITROFURANTOIN MONOHYDRATE
  49. COZAAR [Concomitant]
     Active Substance: LOSARTAN POTASSIUM
  50. FISH OIL\OMEGA-3 FATTY ACIDS [Concomitant]
     Active Substance: FISH OIL\OMEGA-3 FATTY ACIDS
  51. DYMISTA [Concomitant]
     Active Substance: AZELASTINE HYDROCHLORIDE\FLUTICASONE PROPIONATE
  52. BESIVANCE [Concomitant]
     Active Substance: BESIFLOXACIN
  53. LEVEMIR [Concomitant]
     Active Substance: INSULIN DETEMIR
  54. NOVOLOG [Concomitant]
     Active Substance: INSULIN ASPART
  55. ZYRTEC [Concomitant]
     Active Substance: CETIRIZINE HYDROCHLORIDE
  56. POTASSIUM CHLORIDE [Concomitant]
     Active Substance: POTASSIUM CHLORIDE
  57. SYMBICORT [Concomitant]
     Active Substance: BUDESONIDE\FORMOTEROL FUMARATE DIHYDRATE
  58. NEXIUM [Concomitant]
     Active Substance: ESOMEPRAZOLE MAGNESIUM
  59. SEROQUEL [Concomitant]
     Active Substance: QUETIAPINE FUMARATE
  60. MELATONIN;THEANINE [Concomitant]
  61. QULIPTA [Concomitant]
     Active Substance: ATOGEPANT
  62. ACETAMINOPHEN\HYDROCODONE [Concomitant]
     Active Substance: ACETAMINOPHEN\HYDROCODONE
  63. KLAYESTA [Concomitant]
     Active Substance: NYSTATIN
  64. MOUNJARO [Concomitant]
     Active Substance: TIRZEPATIDE
  65. FLUCONAZOLE [Concomitant]
     Active Substance: FLUCONAZOLE
  66. PRAMIPEXOLE [Concomitant]
     Active Substance: PRAMIPEXOLE
  67. ZOLPIDEM TARTRATE [Concomitant]
     Active Substance: ZOLPIDEM TARTRATE
  68. BUPROPION [Concomitant]
     Active Substance: BUPROPION
  69. MOXIFLOXACIN [Concomitant]
     Active Substance: MOXIFLOXACIN
  70. LURASIDONE [Concomitant]
     Active Substance: LURASIDONE
  71. VALACYCLOVIR [Concomitant]
     Active Substance: VALACYCLOVIR HYDROCHLORIDE
  72. DIAZEPAM [Concomitant]
     Active Substance: DIAZEPAM
  73. CLONAZEPAM [Concomitant]
     Active Substance: CLONAZEPAM

REACTIONS (5)
  - Infective glossitis [Unknown]
  - Nausea [Unknown]
  - Influenza [Unknown]
  - Herpes zoster [Unknown]
  - Product use in unapproved indication [Unknown]

NARRATIVE: CASE EVENT DATE: 20191001
